FAERS Safety Report 20510887 (Version 7)
Quarter: 2022Q4

REPORT INFORMATION
  Report Type: Report from Study
  Country: DO (occurrence: DO)
  Receive Date: 20220224
  Receipt Date: 20221229
  Transmission Date: 20230113
  Serious: Yes (Other)
  Sender: FDA-Public Use
  Company Number: DO-NOVARTISPH-NVSC2022DO040068

PATIENT
  Sex: Female

DRUGS (3)
  1. KISQALI [Suspect]
     Active Substance: RIBOCICLIB
     Indication: Breast cancer
     Dosage: 600 MG, QD
     Route: 048
     Dates: start: 20211223
  2. VALPRON [Concomitant]
     Indication: Product used for unknown indication
     Dosage: 500 MG
     Route: 065
  3. OLANZAPINE [Concomitant]
     Active Substance: OLANZAPINE
     Indication: Product used for unknown indication
     Dosage: 5 MG
     Route: 065

REACTIONS (13)
  - Diabetes mellitus [Unknown]
  - Breast disorder [Unknown]
  - Breast mass [Unknown]
  - Blood glucose increased [Unknown]
  - Mental disorder [Unknown]
  - Anxiety [Unknown]
  - Hyperhidrosis [Unknown]
  - Impaired healing [Unknown]
  - Nodule [Unknown]
  - Somnolence [Unknown]
  - Influenza [Unknown]
  - Unevaluable event [Unknown]
  - White blood cell count decreased [Unknown]
